FAERS Safety Report 8613918-0 (Version None)
Quarter: 2012Q3

REPORT INFORMATION
  Report Type: 
  Country: None (occurrence: None)
  Receive Date: 20120823
  Receipt Date: 20120726
  Transmission Date: 20120928
  Serious: Yes (Hospitalization)
  Sender: FDA-Public Use
  Company Number: US-009507513-1107USA01266

PATIENT

DRUGS (3)
  1. PRILOSEC [Concomitant]
     Indication: GASTROOESOPHAGEAL REFLUX DISEASE
     Dosage: 40 MG, QD
     Route: 048
     Dates: start: 19850101
  2. FOSAMAX [Suspect]
     Indication: OSTEOPENIA
     Dosage: 70 MG, QW
     Route: 048
     Dates: end: 20100901
  3. FOSAMAX [Suspect]
     Indication: OSTEOPOROSIS
     Dosage: UNK
     Route: 048
     Dates: start: 19991001, end: 20101001

REACTIONS (61)
  - ANKLE FRACTURE [None]
  - BURSITIS [None]
  - ADVERSE DRUG REACTION [None]
  - FOREIGN BODY SENSATION IN EYES [None]
  - CYSTITIS NONINFECTIVE [None]
  - HYPOTENSION [None]
  - LIMB INJURY [None]
  - BONE DISORDER [None]
  - SLEEP APNOEA SYNDROME [None]
  - OEDEMA PERIPHERAL [None]
  - HYPERTENSION [None]
  - SOFT TISSUE DISORDER [None]
  - LIGAMENT SPRAIN [None]
  - FALL [None]
  - ENTHESOPATHY [None]
  - ECZEMA [None]
  - ABDOMINAL DISTENSION [None]
  - BACK PAIN [None]
  - FEMUR FRACTURE [None]
  - CARPAL TUNNEL SYNDROME [None]
  - SCIATICA [None]
  - BONE CYST [None]
  - MUSCULAR WEAKNESS [None]
  - STRESS URINARY INCONTINENCE [None]
  - PLEURISY [None]
  - ULNA FRACTURE [None]
  - RADIUS FRACTURE [None]
  - CHONDROMALACIA [None]
  - XERODERMA [None]
  - NYSTAGMUS [None]
  - MUSCULOSKELETAL CHEST PAIN [None]
  - OSTEOPENIA [None]
  - NIGHT SWEATS [None]
  - MYOSITIS [None]
  - DEPRESSION [None]
  - TYPE IV HYPERSENSITIVITY REACTION [None]
  - SPONDYLITIS [None]
  - INTESTINAL MASS [None]
  - HYPOKALAEMIA [None]
  - CONTUSION [None]
  - DIZZINESS [None]
  - DRUG INEFFECTIVE [None]
  - ILIOTIBIAL BAND SYNDROME [None]
  - PARAESTHESIA [None]
  - NASOPHARYNGITIS [None]
  - RECTAL POLYP [None]
  - LEVATOR SYNDROME [None]
  - ANAL SPASM [None]
  - HYPERTONIC BLADDER [None]
  - MUSCLE SPASMS [None]
  - FLATULENCE [None]
  - ORAL HERPES [None]
  - PYREXIA [None]
  - ARTHRITIS [None]
  - FATIGUE [None]
  - ANXIETY [None]
  - EXOSTOSIS [None]
  - HAEMORRHOIDS [None]
  - URINARY TRACT INFECTION [None]
  - HEADACHE [None]
  - MYALGIA [None]
